FAERS Safety Report 18621574 (Version 1)
Quarter: 2020Q4

REPORT INFORMATION
  Report Type: Spontaneous
  Country: HU (occurrence: HU)
  Receive Date: 20201216
  Receipt Date: 20201216
  Transmission Date: 20210114
  Serious: Yes (Death, Hospitalization, Other)
  Sender: FDA-Public Use
  Company Number: HU-ALKEM LABORATORIES LIMITED-HU-ALKEM-2020-08437

PATIENT
  Age: 37 Year
  Sex: Female

DRUGS (2)
  1. LAMOTRIGINE. [Suspect]
     Active Substance: LAMOTRIGINE
     Dosage: 25 MILLIGRAM, QD(4TH WEEK OF DRUG ADMINISTRTION)
     Route: 065
  2. LAMOTRIGINE. [Suspect]
     Active Substance: LAMOTRIGINE
     Indication: PRODUCT USED FOR UNKNOWN INDICATION
     Dosage: 12.5 MILLIGRAM, QD
     Route: 065

REACTIONS (13)
  - Pancytopenia [Unknown]
  - Blood albumin decreased [Unknown]
  - Hypernatraemia [Unknown]
  - Pancreatic enzymes increased [Unknown]
  - Hypoproteinaemia [Unknown]
  - Multiple organ dysfunction syndrome [Fatal]
  - Leukopenia [Unknown]
  - Sepsis [Fatal]
  - Hepatic enzyme increased [Unknown]
  - Toxic epidermal necrolysis [Fatal]
  - Atrial fibrillation [Unknown]
  - Procalcitonin increased [Unknown]
  - Respiratory failure [Unknown]
